FAERS Safety Report 7903499-9 (Version None)
Quarter: 2011Q4

REPORT INFORMATION
  Report Type: 
  Country: None (occurrence: None)
  Receive Date: 20111109
  Receipt Date: 20111103
  Transmission Date: 20120403
  Serious: Yes (Death, Hospitalization)
  Sender: FDA-Public Use
  Company Number: IT-BAYER-2011-097205

PATIENT
  Age: 91 Year
  Sex: Female

DRUGS (5)
  1. TIMOLOL MALEATE [Concomitant]
     Indication: GLAUCOMA
     Route: 047
  2. ENALAPRIL MALEATE [Concomitant]
     Indication: HYPERTENSION
  3. ASPIRIN [Suspect]
     Indication: CARDIOVASCULAR EVENT PROPHYLAXIS
     Dosage: 100 MG, QD
     Route: 048
     Dates: start: 20090101, end: 20110517
  4. LATANOPROST [Concomitant]
     Indication: GLAUCOMA
     Route: 047
  5. ATARAX [Concomitant]
     Indication: AGITATION

REACTIONS (18)
  - MOVEMENT DISORDER [None]
  - BRADYCARDIA [None]
  - MUSCULAR WEAKNESS [None]
  - GAZE PALSY [None]
  - EXTENSOR PLANTAR RESPONSE [None]
  - CONFABULATION [None]
  - CEREBRAL HAEMORRHAGE [None]
  - MALAISE [None]
  - HEMIPLEGIA [None]
  - HYPERTENSION [None]
  - FACIAL NERVE DISORDER [None]
  - ALTERED STATE OF CONSCIOUSNESS [None]
  - ACUTE PULMONARY OEDEMA [None]
  - CARDIAC ARREST [None]
  - DYSPHAGIA [None]
  - PNEUMONIA [None]
  - SOPOR [None]
  - SLEEP PHASE RHYTHM DISTURBANCE [None]
